FAERS Safety Report 11090033 (Version 1)
Quarter: 2015Q2

REPORT INFORMATION
  Report Type: Spontaneous
  Country: US (occurrence: None)
  Receive Date: 20150501
  Receipt Date: 20150501
  Transmission Date: 20150821
  Serious: Yes (Other)
  Sender: FDA-Public Use
  Company Number: 2015PRN00012

PATIENT
  Age: 77 Year
  Sex: Female
  Weight: 122 kg

DRUGS (6)
  1. ATORVASTATIN [Concomitant]
     Active Substance: ATORVASTATIN
  2. ROPINIROLE HCL [Suspect]
     Active Substance: ROPINIROLE HYDROCHLORIDE
     Indication: RESTLESS LEGS SYNDROME
     Dates: start: 201403, end: 201403
  3. ARIMIDEX [Concomitant]
     Active Substance: ANASTROZOLE
  4. BYSTOLIC [Concomitant]
     Active Substance: NEBIVOLOL HYDROCHLORIDE
  5. VITAMIN D3 [Concomitant]
     Active Substance: CHOLECALCIFEROL
  6. LOSARTAN-HYDROCHLOROTHIAZIDE [Concomitant]

REACTIONS (19)
  - Fall [None]
  - Spinal pain [None]
  - Pulmonary hypertension [None]
  - Red blood cell sedimentation rate increased [None]
  - Drug ineffective [None]
  - Restless legs syndrome [None]
  - Fatigue [None]
  - Neck pain [None]
  - Pain in jaw [None]
  - Mental impairment [None]
  - Musculoskeletal disorder [None]
  - Condition aggravated [None]
  - Balance disorder [None]
  - Paraesthesia [None]
  - Poor quality sleep [None]
  - Dyspnoea [None]
  - Pain in extremity [None]
  - C-reactive protein increased [None]
  - Headache [None]

NARRATIVE: CASE EVENT DATE: 20140306
